FAERS Safety Report 5551457-4 (Version None)
Quarter: 2007Q4

REPORT INFORMATION
  Report Type: 
  Country: None (occurrence: None)
  Receive Date: 20071212
  Receipt Date: 20071130
  Transmission Date: 20080405
  Serious: Yes (Life-Threatening, Other)
  Sender: FDA-Public Use
  Company Number: JP-PFIZER INC-2007088623

PATIENT
  Sex: Male
  Weight: 61 kg

DRUGS (3)
  1. METHYLPREDNISOLONE [Suspect]
     Indication: ACUTE RESPIRATORY DISTRESS SYNDROME
     Route: 042
     Dates: start: 20060430, end: 20060513
  2. PREDNISOLONE [Suspect]
     Indication: ACUTE RESPIRATORY DISTRESS SYNDROME
     Route: 048
     Dates: start: 20060514, end: 20060521
  3. VANCOMYCIN [Concomitant]
     Route: 042
     Dates: start: 20060517, end: 20060530

REACTIONS (1)
  - PNEUMONIA CYTOMEGALOVIRAL [None]
